FAERS Safety Report 11194286 (Version 1)
Quarter: 2015Q2

REPORT INFORMATION
  Report Type: Spontaneous
  Country: US (occurrence: US)
  Receive Date: 20150616
  Receipt Date: 20150616
  Transmission Date: 20150821
  Serious: Yes (Hospitalization)
  Sender: FDA-Public Use
  Company Number: US-PERRIGO-15US005918

PATIENT
  Age: 30 Year
  Sex: Male

DRUGS (1)
  1. IBUPROFEN 200 MG 604 [Suspect]
     Active Substance: IBUPROFEN
     Indication: COSTOCHONDRITIS
     Dosage: UNKNOWN, PRN
     Route: 048

REACTIONS (3)
  - Pain [Recovered/Resolved]
  - Drug eruption [Recovered/Resolved]
  - Skin lesion [Recovered/Resolved]
